FAERS Safety Report 8096419-0 (Version None)
Quarter: 2012Q1

REPORT INFORMATION
  Report Type: 
  Country: None (occurrence: None)
  Receive Date: 20120129
  Receipt Date: 20111213
  Transmission Date: 20120608
  Serious: No
  Sender: FDA-Public Use
  Company Number: US-ABBOTT-11P-163-0883027-00

PATIENT
  Age: 56 Year
  Sex: Male

DRUGS (4)
  1. VITAMIN B-12 [Concomitant]
     Indication: ROUTINE HEALTH MAINTENANCE
  2. HUMIRA [Suspect]
     Indication: CROHN'S DISEASE
     Dosage: LOADING DOSE
     Dates: start: 20111202
  3. SULFITE PILL [Concomitant]
     Indication: CROHN'S DISEASE
     Dosage: TWICE DAILY
     Route: 048
  4. VITAMIN B-12 [Concomitant]
     Indication: CROHN'S DISEASE

REACTIONS (1)
  - INJECTION SITE PAIN [None]
